FAERS Safety Report 10150173 (Version 1)
Quarter: 2014Q2

REPORT INFORMATION
  Report Type: Spontaneous
  Country: BR (occurrence: BR)
  Receive Date: 20140502
  Receipt Date: 20140502
  Transmission Date: 20141212
  Serious: Yes (Other)
  Sender: FDA-Public Use
  Company Number: BR-JNJFOC-20140418120

PATIENT
  Age: 61 Year
  Sex: Female
  Weight: 60 kg

DRUGS (2)
  1. REMINYL ER [Suspect]
     Indication: PRODUCT USED FOR UNKNOWN INDICATION
     Route: 065
     Dates: start: 20140417
  2. SIMVASTATIN [Concomitant]
     Route: 065
     Dates: start: 2013

REACTIONS (7)
  - Hallucination [Recovered/Resolved]
  - Medication error [Recovered/Resolved]
  - Pain [Recovered/Resolved]
  - Nightmare [Recovered/Resolved]
  - Vomiting [Recovered/Resolved]
  - Chills [Recovered/Resolved]
  - Head discomfort [Recovered/Resolved]
